FAERS Safety Report 7933803-7 (Version None)
Quarter: 2011Q4

REPORT INFORMATION
  Report Type: 
  Country: None (occurrence: None)
  Receive Date: 20111122
  Receipt Date: 20111110
  Transmission Date: 20120403
  Serious: Yes (Hospitalization)
  Sender: FDA-Public Use
  Company Number: US-ROCHE-1012338

PATIENT
  Sex: Female

DRUGS (3)
  1. TAXOTERE [Concomitant]
     Indication: BREAST CANCER
  2. HERCEPTIN [Suspect]
     Indication: BREAST CANCER
  3. CARBOPLATIN [Concomitant]
     Indication: BREAST CANCER

REACTIONS (4)
  - RESPIRATORY DISTRESS [None]
  - RESPIRATION ABNORMAL [None]
  - LUNG INFILTRATION [None]
  - HYPOXIA [None]
